FAERS Safety Report 12448150 (Version 2)
Quarter: 2016Q3

REPORT INFORMATION
  Report Type: Spontaneous
  Country: None (occurrence: NL)
  Receive Date: 20160608
  Receipt Date: 20160909
  Transmission Date: 20161109
  Serious: Yes (Other)
  Sender: FDA-Public Use
  Company Number: NL-MERCK KGAA-1053529

PATIENT

DRUGS (1)
  1. NOVOTHYROX [Suspect]
     Active Substance: LEVOTHYROXINE SODIUM

REACTIONS (7)
  - Abdominal pain upper [None]
  - Head discomfort [None]
  - Arrhythmia [None]
  - Coronary artery occlusion [None]
  - Diarrhoea [None]
  - Oesophageal disorder [None]
  - Product counterfeit [None]
